FAERS Safety Report 23557799 (Version 1)
Quarter: 2024Q1

REPORT INFORMATION
  Report Type: Other
  Country: TH (occurrence: None)
  Receive Date: 20240223
  Receipt Date: 20240223
  Transmission Date: 20240410
  Serious: Yes (Other)
  Sender: FDA-Public Use
  Company Number: TH-ROCHE-3512088

PATIENT

DRUGS (2)
  1. RITUXIMAB [Suspect]
     Active Substance: RITUXIMAB
     Indication: Multiple sclerosis
     Dosage: TWO INFUSIONS
     Route: 042
  2. RITUXIMAB [Suspect]
     Active Substance: RITUXIMAB
     Indication: Neuromyelitis optica spectrum disorder

REACTIONS (22)
  - Off label use [Unknown]
  - Herpes zoster disseminated [Unknown]
  - Hypotension [Recovered/Resolved]
  - Urinary tract infection [Unknown]
  - Pneumonia [Unknown]
  - Upper respiratory tract infection [Unknown]
  - Gastroenteritis [Unknown]
  - Leukopenia [Unknown]
  - Lymphopenia [Unknown]
  - Myalgia [Unknown]
  - Arthralgia [Unknown]
  - Pyrexia [Unknown]
  - Rash [Unknown]
  - Chills [Unknown]
  - Headache [Unknown]
  - Hypertension [Unknown]
  - Chest discomfort [Unknown]
  - Palpitations [Unknown]
  - Rhinorrhoea [Unknown]
  - Nausea [Unknown]
  - Hypoaesthesia [Unknown]
  - Burning sensation [Unknown]
